FAERS Safety Report 4587256-X (Version None)
Quarter: 2005Q1

REPORT INFORMATION
  Report Type: 
  Country: None (occurrence: None)
  Receive Date: 20050218
  Receipt Date: 20050210
  Transmission Date: 20050727
  Serious: Yes (Hospitalization)
  Sender: FDA-Public Use
  Company Number: FR-GLAXOSMITHKLINE-B0371515A

PATIENT
  Age: 48 Year
  Sex: Female

DRUGS (6)
  1. AUGMENTIN '125' [Suspect]
     Indication: ILL-DEFINED DISORDER
     Route: 065
  2. DEPAKENE [Suspect]
     Indication: MIGRAINE
     Route: 065
  3. RIVOTRIL [Suspect]
     Indication: GRAND MAL CONVULSION
     Route: 042
     Dates: start: 20050117, end: 20050118
  4. BETAFERON [Suspect]
     Indication: MULTIPLE SCLEROSIS
     Route: 058
     Dates: end: 20050116
  5. TRILEPTAL [Suspect]
     Indication: EPILEPSY
     Dosage: 600MG TWICE PER DAY
     Route: 048
     Dates: start: 20030101, end: 20050119
  6. PRODILANTIN [Suspect]
     Indication: GRAND MAL CONVULSION
     Route: 042
     Dates: start: 20050117, end: 20050119

REACTIONS (5)
  - ALANINE AMINOTRANSFERASE INCREASED [None]
  - ASPARTATE AMINOTRANSFERASE INCREASED [None]
  - HEPATITIS FULMINANT [None]
  - HEPATOCELLULAR DAMAGE [None]
  - PROTHROMBIN LEVEL DECREASED [None]
